FAERS Safety Report 4459091-4 (Version None)
Quarter: 2004Q3

REPORT INFORMATION
  Report Type: 
  Country: None (occurrence: None)
  Receive Date: 20040927
  Receipt Date: 20040916
  Transmission Date: 20050211
  Serious: Yes (Other)
  Sender: FDA-Public Use
  Company Number: GB-JNJFOC-20040905835

PATIENT
  Age: 40 Year
  Sex: Male

DRUGS (4)
  1. RISPERDAL CONSTA [Suspect]
     Route: 030
  2. RISPERDAL CONSTA [Suspect]
     Indication: SCHIZOPHRENIA
     Route: 030
  3. CLOPIXOL [Interacting]
     Route: 030
     Dates: start: 20040807, end: 20040807
  4. LORAZEPAM [Concomitant]
     Indication: AGITATION
     Route: 049
     Dates: start: 20040807, end: 20040809

REACTIONS (2)
  - CHOLESTASIS [None]
  - DRUG INTERACTION [None]
